FAERS Safety Report 22344764 (Version 1)
Quarter: 2023Q2

REPORT INFORMATION
  Report Type: Spontaneous
  Country: US (occurrence: US)
  Receive Date: 20230519
  Receipt Date: 20230519
  Transmission Date: 20230721
  Serious: No
  Sender: FDA-Public Use
  Company Number: US-TEVA-2023-US-2884576

PATIENT
  Sex: Female

DRUGS (1)
  1. METHOTREXATE [Suspect]
     Active Substance: METHOTREXATE
     Indication: Vasculitis
     Dosage: TAKING 25 MG A WEEK ON UNKNOWN DATES/TAKING 5 TABLETS ON MONDAY AND 5 TABLETS ON THURSDAY
     Route: 065

REACTIONS (4)
  - Alopecia [Recovered/Resolved]
  - Product use in unapproved indication [Unknown]
  - Intentional product misuse [Unknown]
  - Product communication issue [Unknown]
